FAERS Safety Report 11625244 (Version 1)
Quarter: 2015Q4

REPORT INFORMATION
  Report Type: Spontaneous
  Country: US (occurrence: US)
  Receive Date: 20151013
  Receipt Date: 20151013
  Transmission Date: 20160304
  Serious: No
  Sender: FDA-Public Use
  Company Number: US-ENDO PHARMACEUTICALS INC.-VALS20150006

PATIENT
  Age: 81 Year
  Sex: Male

DRUGS (1)
  1. VALSTAR [Suspect]
     Active Substance: VALRUBICIN
     Route: 043

REACTIONS (5)
  - Bladder spasm [Unknown]
  - Urge incontinence [Recovered/Resolved]
  - Underdose [Recovered/Resolved]
  - Wrong technique in product usage process [Recovered/Resolved]
  - Bladder instillation procedure [Recovered/Resolved]

NARRATIVE: CASE EVENT DATE: 20150204
